FAERS Safety Report 18199110 (Version 1)
Quarter: 2020Q3

REPORT INFORMATION
  Report Type: Spontaneous
  Country: US (occurrence: US)
  Receive Date: 20200826
  Receipt Date: 20200826
  Transmission Date: 20201103
  Serious: Yes (Death)
  Sender: FDA-Public Use
  Company Number: US-SYNEX-T202004245

PATIENT
  Age: 8 Month

DRUGS (1)
  1. INOMAX [Suspect]
     Active Substance: NITRIC OXIDE
     Indication: MULTIPLE CARDIAC DEFECTS
     Dosage: 20 PPM (INHALATION)
     Route: 055
     Dates: start: 20200611, end: 20200612

REACTIONS (2)
  - Product use issue [Unknown]
  - Multiple cardiac defects [Fatal]

NARRATIVE: CASE EVENT DATE: 20200611
